FAERS Safety Report 6412830-5 (Version None)
Quarter: 2009Q4

REPORT INFORMATION
  Report Type: 
  Country: None (occurrence: None)
  Receive Date: 20091023
  Receipt Date: 20091020
  Transmission Date: 20100525
  Serious: Yes (Other)
  Sender: FDA-Public Use
  Company Number: AU-SANOFI-SYNTHELABO-A01200910721

PATIENT
  Age: 68 Year
  Sex: Male

DRUGS (3)
  1. ASPIRIN [Concomitant]
  2. CAPECITABINE [Concomitant]
     Indication: COLON CANCER METASTATIC
     Route: 048
  3. OXALIPLATIN [Suspect]
     Indication: COLON CANCER METASTATIC
     Dosage: 210 MG
     Route: 041

REACTIONS (1)
  - TRANSIENT ISCHAEMIC ATTACK [None]
